FAERS Safety Report 6746119-1 (Version None)
Quarter: 2010Q2

REPORT INFORMATION
  Report Type: 
  Country: None (occurrence: None)
  Receive Date: 20100528
  Receipt Date: 20100114
  Transmission Date: 20101027
  Serious: No
  Sender: FDA-Public Use
  Company Number: US-ASTRAZENECA-2010SE03580

PATIENT
  Age: 67 Year
  Sex: Female

DRUGS (8)
  1. PRILOSEC [Suspect]
     Route: 048
  2. PRILOSEC OTC [Suspect]
     Route: 048
  3. PLAVIX [Suspect]
     Indication: CARDIOVASCULAR EVENT PROPHYLAXIS
     Route: 048
     Dates: start: 20050101
  4. PLAVIX [Suspect]
     Indication: BLOOD CHOLESTEROL INCREASED
     Route: 048
     Dates: start: 20050101
  5. FLEXERIL [Concomitant]
     Dosage: UNKNOWN
  6. AMLODIPINE [Concomitant]
     Dosage: UNKNOWN
  7. HYDROCHLOROTHIAZIDE [Concomitant]
     Dosage: UNKNOWN
  8. ALL OTHER THERAPEUTIC PRODUCTS [Concomitant]
     Dosage: UNKNOWN

REACTIONS (4)
  - ABDOMINAL DISCOMFORT [None]
  - CHEST PAIN [None]
  - HYPOAESTHESIA [None]
  - HYPOAESTHESIA FACIAL [None]
